FAERS Safety Report 7647530-7 (Version None)
Quarter: 2011Q3

REPORT INFORMATION
  Report Type: 
  Country: None (occurrence: None)
  Receive Date: 20110801
  Receipt Date: 20110722
  Transmission Date: 20111222
  Serious: Yes (Death)
  Sender: FDA-Public Use
  Company Number: JP-GLAXOSMITHKLINE-B0704676A

PATIENT
  Sex: Female
  Weight: 41 kg

DRUGS (12)
  1. CLARITHROMYCIN [Concomitant]
     Dosage: 400MG PER DAY
     Route: 048
     Dates: start: 20110202, end: 20110202
  2. LANSOPRAZOLE [Concomitant]
     Indication: PROPHYLAXIS AGAINST GASTROINTESTINAL ULCER
     Dosage: 30MG PER DAY
     Route: 048
  3. FLIVAS [Concomitant]
     Dosage: .1MG PER DAY
     Route: 048
     Dates: end: 20110211
  4. PREDNISOLONE [Concomitant]
     Dosage: 20MG PER DAY
     Route: 048
     Dates: start: 20110218
  5. UNSPECIFIED MEDICATION [Concomitant]
     Indication: IDIOPATHIC THROMBOCYTOPENIC PURPURA
     Dosage: 300MG PER DAY
     Route: 048
     Dates: start: 20110214, end: 20110219
  6. MAALOX [Concomitant]
     Dosage: 3.6MG PER DAY
     Route: 048
     Dates: start: 20110216, end: 20110219
  7. PURSENNID [Concomitant]
     Dosage: 12MG PER DAY
     Route: 048
  8. PROMACTA [Suspect]
     Indication: IDIOPATHIC THROMBOCYTOPENIC PURPURA
     Dosage: 12.5MG PER DAY
     Route: 048
     Dates: start: 20110202, end: 20110304
  9. VESICARE [Concomitant]
     Dosage: 5MG PER DAY
     Route: 048
     Dates: start: 20110212, end: 20110219
  10. BACTRIM [Concomitant]
     Indication: ANTIFUNGAL PROPHYLAXIS
     Dosage: 2IUAX PER DAY
     Route: 048
     Dates: start: 20110215, end: 20110225
  11. PREDNISOLONE [Concomitant]
     Indication: IDIOPATHIC THROMBOCYTOPENIC PURPURA
     Dosage: 30MG PER DAY
     Route: 048
     Dates: start: 20110128, end: 20110217
  12. LOXONIN [Concomitant]
     Dosage: 60MG PER DAY
     Route: 048

REACTIONS (1)
  - LIVER DISORDER [None]
